FAERS Safety Report 8035437 (Version 3)
Quarter: 2012Q4

REPORT INFORMATION
  Report Type: 
  Country: US (occurrence: US)
  Receive Date: 20110714
  Receipt Date: 20121024
  Transmission Date: 20130627
  Serious: Yes (Hospitalization)
  Sender: FDA-Public Use
  Company Number: US-BAYER-2011-059763

PATIENT
  Age: 18 Year
  Sex: Female
  Weight: 47 kg

DRUGS (9)
  1. YASMIN [Suspect]
     Indication: CONTRACEPTION
     Dosage: UNK
     Route: 048
     Dates: start: 200812, end: 200905
  2. YASMIN [Suspect]
     Indication: ACNE
  3. YASMIN [Suspect]
     Indication: PREMENSTRUAL SYNDROME
  4. IBUPROFEN [Concomitant]
     Dosage: UNK UNK, PRN
     Route: 048
     Dates: start: 2002
  5. ADVIL [Concomitant]
     Dosage: UNK UNK, PRN
     Route: 048
     Dates: start: 2002
  6. CALCIUM [Concomitant]
     Dosage: Daily dose 1200 mg
     Route: 048
     Dates: start: 20081126
  7. CIPROFLOXACIN [Concomitant]
     Dosage: Daily dose 500 mg
     Route: 048
     Dates: start: 20090208
  8. VICODIN [Concomitant]
     Dosage: UNK
     Route: 048
     Dates: start: 20090208
  9. RETIN-A [Concomitant]
     Dosage: UNK
     Dates: start: 20090507

REACTIONS (2)
  - Deep vein thrombosis [Recovered/Resolved]
  - Pain [Recovered/Resolved]
